FAERS Safety Report 14911792 (Version 1)
Quarter: 2018Q2

REPORT INFORMATION
  Report Type: Spontaneous
  Country: US (occurrence: US)
  Receive Date: 20180518
  Receipt Date: 20180518
  Transmission Date: 20180711
  Serious: Yes (Hospitalization, Other)
  Sender: FDA-Public Use
  Company Number: US-ROCHE-2124108

PATIENT
  Sex: Male

DRUGS (1)
  1. RITUXIMAB. [Suspect]
     Active Substance: RITUXIMAB
     Indication: NEUROMYELITIS OPTICA SPECTRUM DISORDER
     Route: 065

REACTIONS (6)
  - Alpha haemolytic streptococcal infection [Unknown]
  - Immunodeficiency common variable [Unknown]
  - Rhinitis [Recovering/Resolving]
  - Respiratory tract infection bacterial [Unknown]
  - Pneumonia [Unknown]
  - Sinusitis [Recovering/Resolving]
